FAERS Safety Report 7493348-8 (Version None)
Quarter: 2011Q2

REPORT INFORMATION
  Report Type: 
  Country: None (occurrence: None)
  Receive Date: 20110520
  Receipt Date: 20110516
  Transmission Date: 20111010
  Serious: Yes (Hospitalization, Other)
  Sender: FDA-Public Use
  Company Number: US-PFIZER INC-2011038398

PATIENT
  Sex: Female

DRUGS (1)
  1. CHANTIX [Suspect]
     Indication: SMOKING CESSATION THERAPY
     Dosage: STARTER PACK (0.5MG) AND CONTINUINING MONTHLY PACK (1MG)
     Dates: start: 20090501, end: 20090601

REACTIONS (7)
  - LOSS OF CONSCIOUSNESS [None]
  - BACK PAIN [None]
  - FALL [None]
  - ANXIETY [None]
  - ARTHRALGIA [None]
  - BACK INJURY [None]
  - JOINT INJURY [None]
